FAERS Safety Report 10039318 (Version 1)
Quarter: 2014Q1

REPORT INFORMATION
  Report Type: Spontaneous
  Country: IN (occurrence: IN)
  Receive Date: 20140326
  Receipt Date: 20140326
  Transmission Date: 20141002
  Serious: Yes (Death)
  Sender: FDA-Public Use
  Company Number: PHHY2014IN031585

PATIENT
  Age: 11 Month
  Sex: Male

DRUGS (23)
  1. VALPROATE SODIUM [Suspect]
     Indication: CONVULSION
  2. AMOXICILLIN AND CLAVULANATE [Suspect]
     Indication: RESPIRATORY TRACT INFECTION
     Route: 048
  3. AMOXICILLIN AND CLAVULANATE [Suspect]
     Indication: DIARRHOEA
  4. OFLOXACIN 1A PHARMA [Suspect]
     Indication: RESPIRATORY TRACT INFECTION
     Route: 048
  5. OFLOXACIN 1A PHARMA [Suspect]
     Indication: DIARRHOEA
  6. CEFTRIAXONE [Suspect]
     Indication: RESPIRATORY TRACT INFECTION
     Route: 042
  7. CEFTRIAXONE [Suspect]
     Indication: DIARRHOEA
  8. LEVETIRACETAM [Suspect]
     Indication: CONVULSION
  9. TACROLIMUS [Suspect]
     Indication: IMMUNOSUPPRESSION
     Dosage: 1 MG/KG, QD
  10. MYCOPHENOLATE MOFETIL [Suspect]
     Indication: IMMUNOSUPPRESSION
     Dosage: 15 MG/KG, TID
  11. CYCLOPHOSPHAMIDE [Suspect]
     Indication: IMMUNOSUPPRESSION
     Dosage: 50 MG/KG, UNK
  12. PHENOBARBITONE [Suspect]
     Indication: CONVULSION
  13. CASPOFUNGIN [Concomitant]
     Route: 042
  14. SULFADOXINA W/ PIRIMETAMINA [Concomitant]
  15. ACYCLOVIR [Concomitant]
     Route: 042
  16. ISONIAZID [Concomitant]
     Indication: TUBERCULOSIS
  17. RIFAMPICIN [Concomitant]
     Indication: TUBERCULOSIS
  18. ETHAMBUTOL [Concomitant]
     Indication: TUBERCULOSIS
  19. PIRAZINAMIDA [Concomitant]
     Indication: TUBERCULOSIS
  20. FLUCONAZOLE [Concomitant]
  21. CO-TRIMOXAZOLE [Concomitant]
     Indication: ANTIFUNGAL PROPHYLAXIS
  22. IMMUNGLOBULIN [Concomitant]
     Route: 042
  23. MIDAZOLAM [Concomitant]
     Indication: EPILEPSY
     Route: 041

REACTIONS (3)
  - Transplant rejection [Fatal]
  - Nervous system disorder [Fatal]
  - Drug ineffective [Not Recovered/Not Resolved]
